FAERS Safety Report 22055685 (Version 1)
Quarter: 2023Q1

REPORT INFORMATION
  Report Type: Spontaneous
  Country: US (occurrence: None)
  Receive Date: 20230302
  Receipt Date: 20230302
  Transmission Date: 20230417
  Serious: No
  Sender: FDA-Public Use
  Company Number: None

PATIENT

DRUGS (2)
  1. LYUMJEV [Suspect]
     Active Substance: INSULIN LISPRO-AABC
     Dosage: OTHER STRENGTH : 200IU/ML;?
  2. LYUMJEV [Suspect]
     Active Substance: INSULIN LISPRO-AABC
     Dosage: OTHER STRENGTH : 100IU/ML;?

REACTIONS (6)
  - Product dispensing error [None]
  - Transcription medication error [None]
  - Drug monitoring procedure not performed [None]
  - Incorrect dose administered [None]
  - Incorrect dose administered [None]
  - Blood glucose decreased [None]
